FAERS Safety Report 14977601 (Version 1)
Quarter: 2018Q2

REPORT INFORMATION
  Report Type: Report from Study
  Country: US (occurrence: US)
  Receive Date: 20180606
  Receipt Date: 20180606
  Transmission Date: 20180711
  Serious: Yes (Other)
  Sender: FDA-Public Use
  Company Number: US-TAKEDA-2018TUS016592

PATIENT
  Sex: Male

DRUGS (1)
  1. PONATINIB [Suspect]
     Active Substance: PONATINIB
     Indication: MYELOID LEUKAEMIA
     Dosage: 30 MG, QD
     Route: 048
     Dates: start: 20180314

REACTIONS (15)
  - Pain [Unknown]
  - Essential hypertension [Unknown]
  - Myalgia [Unknown]
  - Dyslipidaemia [Unknown]
  - Depression [Unknown]
  - Headache [Unknown]
  - Dizziness [Unknown]
  - Diabetes mellitus [Unknown]
  - Gastrooesophageal reflux disease [Unknown]
  - Rectal haemorrhage [Unknown]
  - Chest pain [Unknown]
  - Palpitations [Unknown]
  - Abdominal discomfort [Unknown]
  - Adenocarcinoma [Unknown]
  - Back pain [Unknown]
